FAERS Safety Report 23931620 (Version 3)
Quarter: 2024Q2

REPORT INFORMATION
  Report Type: Spontaneous
  Country: US (occurrence: US)
  Receive Date: 20240603
  Receipt Date: 20240626
  Transmission Date: 20240716
  Serious: No
  Sender: FDA-Public Use
  Company Number: US-BRISTOL-MYERS SQUIBB COMPANY-2024-088502

PATIENT
  Age: 60 Year
  Sex: Male

DRUGS (2)
  1. REVLIMID [Suspect]
     Active Substance: LENALIDOMIDE
     Indication: Plasma cell myeloma
     Route: 048
     Dates: start: 202404
  2. REVLIMID [Suspect]
     Active Substance: LENALIDOMIDE

REACTIONS (5)
  - Fatigue [Not Recovered/Not Resolved]
  - Off label use [Unknown]
  - Asthenia [Not Recovered/Not Resolved]
  - Brain fog [Not Recovered/Not Resolved]
  - Dizziness [Not Recovered/Not Resolved]
